FAERS Safety Report 13394624 (Version 1)
Quarter: 2017Q2

REPORT INFORMATION
  Report Type: Spontaneous
  Country: IT (occurrence: IT)
  Receive Date: 20170403
  Receipt Date: 20170403
  Transmission Date: 20170830
  Serious: Yes (Hospitalization)
  Sender: FDA-Public Use
  Company Number: IT-ROCHE-1902455

PATIENT
  Age: 42 Year
  Sex: Male

DRUGS (3)
  1. LAROXYL [Suspect]
     Active Substance: AMITRIPTYLINE
     Indication: PRODUCT USED FOR UNKNOWN INDICATION
     Dosage: 25 MG COATED TABLETS 25 TABLETS
     Route: 048
     Dates: start: 20161008, end: 20161008
  2. RIVOTRIL [Suspect]
     Active Substance: CLONAZEPAM
     Indication: PRODUCT USED FOR UNKNOWN INDICATION
     Route: 048
     Dates: start: 20161008, end: 20161008
  3. ETHYL ALCOHOL [Concomitant]
     Active Substance: ALCOHOL
     Dosage: (4-5 GLASSES OF VODKA).
     Route: 065

REACTIONS (3)
  - Suicide attempt [Unknown]
  - Drug use disorder [Unknown]
  - Asthenia [Unknown]

NARRATIVE: CASE EVENT DATE: 20161008
